FAERS Safety Report 5920396-9 (Version None)
Quarter: 2008Q4

REPORT INFORMATION
  Report Type: 
  Country: None (occurrence: None)
  Receive Date: 20081016
  Receipt Date: 20081013
  Transmission Date: 20090506
  Serious: Yes (Life-Threatening, Hospitalization, Other)
  Sender: FDA-Public Use
  Company Number: GB-WYE-G02160608

PATIENT
  Sex: Female

DRUGS (3)
  1. GEMTUZUMAB OZOGAMICIN [Suspect]
     Indication: ACUTE MYELOID LEUKAEMIA
     Dosage: 5 MG FREQUENCY UNKNOWN
     Dates: start: 20080905
  2. ARA-C [Suspect]
     Indication: ACUTE MYELOID LEUKAEMIA
     Dosage: 170 MG FREQUENCY UNKNOWN
     Dates: start: 20080905
  3. DAUNORUBICIN HCL [Suspect]
     Indication: ACUTE MYELOID LEUKAEMIA
     Dosage: 85 MG FREQUENCY UNKNOWN
     Dates: start: 20080905

REACTIONS (4)
  - ABDOMINAL DISCOMFORT [None]
  - CARDIAC FAILURE [None]
  - NEUTROPENIA [None]
  - SEPSIS [None]
